FAERS Safety Report 6370826-6 (Version None)
Quarter: 2009Q3

REPORT INFORMATION
  Report Type: 
  Country: None (occurrence: None)
  Receive Date: 20090923
  Receipt Date: 20070601
  Transmission Date: 20100115
  Serious: Yes (Other)
  Sender: FDA-Public Use
  Company Number: US-ASTRAZENECA-2006UW24282

PATIENT
  Age: 17987 Day
  Sex: Female
  Weight: 77.1 kg

DRUGS (12)
  1. SEROQUEL [Suspect]
     Indication: BIPOLAR DISORDER
     Dosage: 100 MG TO 800 MG DAILY
     Route: 048
     Dates: start: 19990707
  2. SEROQUEL [Suspect]
     Route: 048
     Dates: start: 20030101
  3. PAXIL [Concomitant]
     Dosage: 10 MG TO 80 MG DAILY
     Route: 048
     Dates: start: 19990807
  4. ESKALITH CR [Concomitant]
     Dosage: 600 MG TO 900 MG DAILY
     Route: 048
     Dates: start: 19990807
  5. INDERAL [Concomitant]
     Dosage: 20 MG TO 40 MG DAILY
     Route: 048
     Dates: start: 20000511
  6. TOPAMAX [Concomitant]
     Route: 048
     Dates: start: 20001115
  7. ZYPREXA [Concomitant]
     Dosage: 10 MG, TWO TIMES A DAY, AS REQUIRED
     Dates: start: 20021023
  8. TRAZODONE [Concomitant]
     Dosage: 50 MG TO 100 MG DAILY
     Dates: start: 19990825
  9. NEURONTIN [Concomitant]
     Dosage: 400 MG TO 1600 MG DAILY
     Route: 048
     Dates: start: 20000511
  10. SYNTHROID [Concomitant]
     Dates: start: 20000511
  11. TEGRETOL [Concomitant]
     Dates: start: 20000511
  12. DEPAKOTE [Concomitant]
     Dates: start: 20000511

REACTIONS (3)
  - DIABETES MELLITUS [None]
  - DIABETIC COMA [None]
  - DIABETIC KETOACIDOSIS [None]
